FAERS Safety Report 16146710 (Version 1)
Quarter: 2019Q2

REPORT INFORMATION
  Report Type: Spontaneous
  Country: BR (occurrence: BR)
  Receive Date: 20190402
  Receipt Date: 20190402
  Transmission Date: 20190711
  Serious: Yes (Hospitalization)
  Sender: FDA-Public Use
  Company Number: BR-GLAXOSMITHKLINE-BR2019GSK057393

PATIENT
  Sex: Female

DRUGS (2)
  1. ZINNAT [Suspect]
     Active Substance: CEFUROXIME AXETIL
     Indication: TONSILLITIS BACTERIAL
     Dosage: 6 ML, BID, 70ML AND 50ML BOTTLES
  2. AMOXICILLIN. [Suspect]
     Active Substance: AMOXICILLIN
     Indication: TONSILLITIS BACTERIAL
     Dosage: UNK

REACTIONS (4)
  - Abdominal pain upper [Unknown]
  - Drug hypersensitivity [Unknown]
  - Vomiting [Unknown]
  - Gastric disorder [Unknown]
